FAERS Safety Report 7792995-3 (Version None)
Quarter: 2011Q4

REPORT INFORMATION
  Report Type: 
  Country: None (occurrence: None)
  Receive Date: 20111003
  Receipt Date: 20110905
  Transmission Date: 20120403
  Serious: No
  Sender: FDA-Public Use
  Company Number: JP-AMGEN-JPNCT2011009786

PATIENT
  Age: 59 Year
  Sex: Male
  Weight: 64 kg

DRUGS (12)
  1. LEVOLEUCOVORIN CALCIUM [Concomitant]
     Indication: COLORECTAL CANCER
     Route: 041
     Dates: start: 20100722
  2. FLUOROURACIL [Concomitant]
     Route: 041
     Dates: start: 20100722
  3. FLUOROURACIL [Concomitant]
     Route: 041
     Dates: start: 20100722, end: 20110122
  4. LEVOLEUCOVORIN CALCIUM [Concomitant]
     Route: 041
     Dates: start: 20100722, end: 20110122
  5. PANITUMUMAB [Suspect]
     Dosage: 6 MG/KG, Q2WK
     Route: 041
     Dates: start: 20110106, end: 20110120
  6. PANITUMUMAB [Suspect]
     Indication: COLORECTAL CANCER
     Dosage: 6 MG/KG, Q2WK
     Route: 041
     Dates: start: 20100722
  7. CORTICOSTEROIDS [Concomitant]
     Indication: PROPHYLAXIS
     Dosage: UNK
     Route: 065
  8. FLUOROURACIL [Concomitant]
     Route: 040
     Dates: start: 20100722, end: 20110122
  9. IRINOTECAN HCL [Concomitant]
     Route: 041
     Dates: start: 20100722, end: 20110122
  10. MINOCYCLINE HCL [Concomitant]
     Dosage: UNK
     Route: 048
  11. IRINOTECAN HCL [Concomitant]
     Indication: COLORECTAL CANCER
     Route: 041
     Dates: start: 20100722
  12. FLUOROURACIL [Concomitant]
     Indication: COLORECTAL CANCER
     Route: 040
     Dates: start: 20100722

REACTIONS (4)
  - DEVICE ISSUE [None]
  - SCHIZOPHRENIA [None]
  - WRONG TECHNIQUE IN DRUG USAGE PROCESS [None]
  - DERMATITIS ACNEIFORM [None]
